FAERS Safety Report 14570523 (Version 1)
Quarter: 2018Q1

REPORT INFORMATION
  Report Type: Spontaneous
  Country: SK (occurrence: SK)
  Receive Date: 20180226
  Receipt Date: 20180226
  Transmission Date: 20180509
  Serious: Yes (Other)
  Sender: FDA-Public Use
  Company Number: SK-SUN PHARMACEUTICAL INDUSTRIES LTD-2018RR-164399

PATIENT
  Age: 62 Year
  Sex: Male

DRUGS (3)
  1. DEXAMETHASONUM [Concomitant]
     Active Substance: DEXAMETHASONE
     Indication: THROMBOCYTOPENIA
     Dosage: ()
     Route: 065
  2. NAB-PACLITAXEL [Suspect]
     Active Substance: PACLITAXEL
     Indication: PANCREATIC CARCINOMA METASTATIC
     Dosage: 125 MG/M2, 375 MG/M2 DAILY; ON 1., 8., 15 DAY EVERY 28 DAYS ; CYCLICAL
     Route: 065
     Dates: start: 20160727
  3. GEMCITABINE [Suspect]
     Active Substance: GEMCITABINE\GEMCITABINE HYDROCHLORIDE
     Indication: PANCREATIC CARCINOMA METASTATIC
     Dosage: 1000 MG/M2, 3000 MG/M2 DAILY; ON 1., 8., 15 DAY EVERY 28 DAYS ; CYCLICAL
     Route: 065
     Dates: start: 20160727

REACTIONS (8)
  - Gastrointestinal toxicity [Recovered/Resolved]
  - Haematotoxicity [Recovered/Resolved]
  - Thrombocytopenia [Recovered/Resolved]
  - Nausea [Recovered/Resolved]
  - Pancytopenia [Not Recovered/Not Resolved]
  - Vomiting [Recovered/Resolved]
  - Fatigue [Recovered/Resolved]
  - Dyspepsia [Recovered/Resolved]

NARRATIVE: CASE EVENT DATE: 201709
